FAERS Safety Report 7987970-X (Version None)
Quarter: 2011Q4

REPORT INFORMATION
  Report Type: 
  Country: None (occurrence: None)
  Receive Date: 20111216
  Receipt Date: 20110517
  Transmission Date: 20120403
  Serious: No
  Sender: FDA-Public Use
  Company Number: US-BRISTOL-MYERS SQUIBB COMPANY-15751506

PATIENT
  Age: 12 Year
  Sex: Female

DRUGS (2)
  1. ABILIFY [Suspect]
     Indication: MENTAL DISORDER
  2. BACTRIM [Interacting]

REACTIONS (6)
  - DRUG INTERACTION [None]
  - URINARY TRACT INFECTION [None]
  - ABDOMINAL PAIN UPPER [None]
  - ASTHENIA [None]
  - SKIN DISCOLOURATION [None]
  - EYE MOVEMENT DISORDER [None]
